FAERS Safety Report 9000308 (Version 1)
Quarter: 2013Q1

REPORT INFORMATION
  Report Type: Spontaneous
  Country: US (occurrence: None)
  Receive Date: 20130102
  Receipt Date: 20130102
  Transmission Date: 20140127
  Serious: Yes (Hospitalization)
  Sender: FDA-Public Use
  Company Number: None

PATIENT
  Age: 83 Year
  Sex: Male
  Weight: 76.9 kg

DRUGS (1)
  1. LISINOPRIL [Suspect]
     Indication: HYPERTENSION
     Route: 048
     Dates: start: 20121019

REACTIONS (8)
  - Dizziness [None]
  - Bradycardia [None]
  - Blood urea increased [None]
  - Blood creatinine increased [None]
  - Hyperkalaemia [None]
  - Hypophagia [None]
  - Dyspnoea [None]
  - Obstructive uropathy [None]
